FAERS Safety Report 19352746 (Version 4)
Quarter: 2021Q4

REPORT INFORMATION
  Report Type: Report from Study
  Country: CO (occurrence: CO)
  Receive Date: 20210601
  Receipt Date: 20211221
  Transmission Date: 20220303
  Serious: Yes (Other)
  Sender: FDA-Public Use
  Company Number: CO-TAKEDA1-CO202030333AA

PATIENT
  Age: 44 Year
  Sex: Male
  Weight: 65 kg

DRUGS (4)
  1. VELAGLUCERASE ALFA [Suspect]
     Active Substance: VELAGLUCERASE ALFA
     Indication: Gaucher^s disease
     Dosage: 3600 INTERNATIONAL UNIT
     Route: 042
     Dates: start: 20181122
  2. VELAGLUCERASE ALFA [Suspect]
     Active Substance: VELAGLUCERASE ALFA
     Dosage: 9 DOSAGE FORM
     Route: 042
     Dates: start: 20181122
  3. VELAGLUCERASE ALFA [Suspect]
     Active Substance: VELAGLUCERASE ALFA
     Dosage: 3600 MILLIGRAM
     Route: 042
     Dates: start: 20201009
  4. ACETAMINOPHEN [Concomitant]
     Active Substance: ACETAMINOPHEN
     Indication: Headache
     Route: 048

REACTIONS (4)
  - COVID-19 [Recovered/Resolved]
  - Somnolence [Unknown]
  - Wrong dosage formulation [Unknown]
  - Wrong technique in product usage process [Unknown]

NARRATIVE: CASE EVENT DATE: 20200825
